FAERS Safety Report 25871384 (Version 1)
Quarter: 2025Q4

REPORT INFORMATION
  Report Type: Spontaneous
  Country: EU (occurrence: EU)
  Receive Date: 20251001
  Receipt Date: 20251001
  Transmission Date: 20260118
  Serious: Yes (Other)
  Sender: TAKEDA
  Company Number: EU-ASTRAZENECA-202509GLO020006DE

PATIENT
  Sex: Male

DRUGS (12)
  1. HUMAN IMMUNOGLOBULIN G [Suspect]
     Active Substance: HUMAN IMMUNOGLOBULIN G
     Indication: Product used for unknown indication
     Dosage: 1 GRAM/KILOGRAM, 4/WEEK
  2. CANDESARTAN [Suspect]
     Active Substance: CANDESARTAN
     Indication: Hypertension
     Dosage: 0.1 MILLIGRAM/KILOGRAM, QD
  3. CANDESARTAN [Suspect]
     Active Substance: CANDESARTAN
     Dosage: 0.15 MILLIGRAM/KILOGRAM, QD
  4. CANDESARTAN [Suspect]
     Active Substance: CANDESARTAN
     Dosage: 0.25 MILLIGRAM/KILOGRAM, QD
  5. CYCLOSPORINE [Suspect]
     Active Substance: CYCLOSPORINE
     Indication: Prophylaxis against transplant rejection
     Dosage: UNK
  6. ILOPROST [Suspect]
     Active Substance: ILOPROST
     Indication: Product used for unknown indication
     Dosage: UNK
  7. ILOPROST [Suspect]
     Active Substance: ILOPROST
     Dosage: UNK
  8. METHYLPREDNISOLONE [Suspect]
     Active Substance: METHYLPREDNISOLONE
     Indication: Product used for unknown indication
     Dosage: UNK
  9. MYCOPHENOLATE MOFETIL [Suspect]
     Active Substance: MYCOPHENOLATE MOFETIL
     Indication: Product used for unknown indication
     Dosage: 1200 MILLIGRAM, QD
  10. TACROLIMUS [Suspect]
     Active Substance: TACROLIMUS
     Indication: Product used for unknown indication
     Dosage: UNK
  11. RITUXIMAB [Concomitant]
     Active Substance: RITUXIMAB
     Indication: Product used for unknown indication
     Dosage: UNK
  12. MUROMONAB-CD3 [Concomitant]
     Active Substance: MUROMONAB-CD3
     Indication: Product used for unknown indication
     Dosage: UNK

REACTIONS (3)
  - Embolism [Unknown]
  - Pneumonia [Unknown]
  - Pyelonephritis [Unknown]
